FAERS Safety Report 6878896-3 (Version None)
Quarter: 2010Q3

REPORT INFORMATION
  Report Type: 
  Country: None (occurrence: None)
  Receive Date: 20100728
  Receipt Date: 20100720
  Transmission Date: 20110219
  Serious: Yes (Hospitalization)
  Sender: FDA-Public Use
  Company Number: JP-AMGEN-KDC425845

PATIENT
  Age: 69 Year
  Sex: Male

DRUGS (5)
  1. VECTIBIX [Suspect]
     Indication: COLORECTAL CANCER
     Route: 041
     Dates: start: 20100706, end: 20100706
  2. CALCIUM LEVOFOLINATE [Suspect]
     Indication: COLORECTAL CANCER
     Route: 041
     Dates: start: 20100706
  3. OXALIPLATIN [Suspect]
     Indication: COLORECTAL CANCER
     Route: 041
     Dates: start: 20100706
  4. ANTIHISTAMINES [Concomitant]
     Indication: PROPHYLAXIS
     Route: 065
  5. CORTICOSTEROIDS [Concomitant]
     Indication: PROPHYLAXIS
     Route: 065

REACTIONS (3)
  - INFUSION RELATED REACTION [None]
  - INTERSTITIAL LUNG DISEASE [None]
  - SHOCK [None]
